FAERS Safety Report 9518222 (Version 1)
Quarter: 2013Q3

REPORT INFORMATION
  Report Type: Report from Study
  Country: JP (occurrence: JP)
  Receive Date: 20130912
  Receipt Date: 20130912
  Transmission Date: 20140515
  Serious: Yes (Other)
  Sender: FDA-Public Use
  Company Number: JP-JNJFOC-20130903314

PATIENT
  Age: 60 Year
  Sex: Female
  Weight: 50 kg

DRUGS (18)
  1. SIMPONI [Suspect]
     Indication: RHEUMATOID ARTHRITIS
     Route: 058
     Dates: start: 20120810, end: 20120810
  2. SIMPONI [Suspect]
     Indication: RHEUMATOID ARTHRITIS
     Route: 058
     Dates: start: 20120706, end: 20120706
  3. SIMPONI [Suspect]
     Indication: RHEUMATOID ARTHRITIS
     Route: 058
     Dates: start: 20120608, end: 20120608
  4. PREDONINE [Suspect]
     Indication: RHEUMATOID ARTHRITIS
     Route: 065
     Dates: start: 20111028, end: 20120810
  5. SALAZOSULFAPYRIDINE [Concomitant]
     Indication: RHEUMATOID ARTHRITIS
     Route: 065
  6. BUCILLAMINE [Concomitant]
     Indication: RHEUMATOID ARTHRITIS
     Route: 048
  7. TACROLIMUS HYDRATE [Concomitant]
     Indication: RHEUMATOID ARTHRITIS
     Route: 065
     Dates: start: 20120924
  8. REBAMIPIDE [Concomitant]
     Indication: PROPHYLAXIS
     Route: 048
  9. COVERSYL [Concomitant]
     Route: 048
  10. GLACTIV [Concomitant]
     Route: 048
  11. BAYASPIRIN [Concomitant]
     Route: 048
  12. MEVALOTIN [Concomitant]
     Route: 048
  13. GLUCOBAY [Concomitant]
     Route: 048
  14. DAONIL [Concomitant]
     Route: 048
  15. ISCOTIN [Concomitant]
     Indication: PROPHYLAXIS
     Route: 065
  16. MINOMYCIN [Concomitant]
     Indication: CELLULITIS
     Route: 065
     Dates: start: 20120924, end: 20121118
  17. ACTOS [Concomitant]
     Route: 048
  18. GLAKAY [Concomitant]
     Route: 048

REACTIONS (1)
  - Cellulitis [Recovering/Resolving]
